FAERS Safety Report 9629267 (Version 1)
Quarter: 2013Q4

REPORT INFORMATION
  Report Type: Spontaneous
  Country: US (occurrence: US)
  Receive Date: 20131017
  Receipt Date: 20131017
  Transmission Date: 20140711
  Serious: No
  Sender: FDA-Public Use
  Company Number: US-ASTRAZENECA-2013SE63037

PATIENT
  Age: 51 Year
  Sex: Male
  Weight: 85.3 kg

DRUGS (3)
  1. CRESTOR [Suspect]
     Indication: BLOOD CHOLESTEROL INCREASED
     Route: 048
     Dates: start: 201307
  2. LEXAPRO [Concomitant]
     Indication: HYPERTENSION
     Route: 048
  3. HEARTBURN MEDICATION [Concomitant]

REACTIONS (1)
  - Dysgeusia [Recovered/Resolved]
